FAERS Safety Report 19211302 (Version 1)
Quarter: 2021Q2

REPORT INFORMATION
  Report Type: Spontaneous
  Country: US (occurrence: US)
  Receive Date: 20210501
  Receipt Date: 20210501
  Transmission Date: 20210717
  Serious: Yes (Hospitalization)
  Sender: FDA-Public Use
  Company Number: US-TORRENT-00011058

PATIENT
  Age: 10 Month
  Sex: Female

DRUGS (1)
  1. VENLAFAXINE [Suspect]
     Active Substance: VENLAFAXINE HYDROCHLORIDE
     Indication: PRODUCT USED FOR UNKNOWN INDICATION
     Dosage: UNKNOWN AMOUNT OF VEN PILLS IN MOUTH

REACTIONS (4)
  - Accidental overdose [Unknown]
  - Cardiogenic shock [Recovered/Resolved]
  - Accidental exposure to product by child [Unknown]
  - Cardiotoxicity [Recovered/Resolved]
